FAERS Safety Report 7480619-4 (Version None)
Quarter: 2011Q2

REPORT INFORMATION
  Report Type: 
  Country: None (occurrence: None)
  Receive Date: 20110512
  Receipt Date: 20110512
  Transmission Date: 20111010
  Serious: Yes (Life-Threatening, Hospitalization, Other)
  Sender: FDA-Public Use
  Company Number: None

PATIENT
  Age: 50 Year
  Sex: Female
  Weight: 45.8 kg

DRUGS (8)
  1. COMPAZINE [Concomitant]
  2. OXYCODONE HCL [Concomitant]
  3. RAD001 (EVEROLIMUS) [Suspect]
     Indication: COLORECTAL CANCER
     Dosage: 10.0 MG PO DAILY
     Route: 048
     Dates: start: 20110406, end: 20110410
  4. AV-951 (TIVOZANIB) [Suspect]
     Indication: COLORECTAL CANCER
     Dosage: 1.0 MG PO DAILY
     Route: 048
     Dates: start: 20110406, end: 20110410
  5. MS CONTIN [Concomitant]
  6. OMEPRAZOLE [Concomitant]
  7. ATIVAN [Concomitant]
  8. NYSTATIN [Concomitant]

REACTIONS (9)
  - DEHYDRATION [None]
  - BILIRUBIN CONJUGATED INCREASED [None]
  - HYPOPHAGIA [None]
  - RENAL FAILURE [None]
  - BLOOD UREA INCREASED [None]
  - BLOOD CREATININE INCREASED [None]
  - HYPERURICAEMIA [None]
  - HYPERMAGNESAEMIA [None]
  - FAILURE TO THRIVE [None]
